FAERS Safety Report 9720699 (Version 9)
Quarter: 2015Q3

REPORT INFORMATION
  Report Type: Report from Study
  Country: BR (occurrence: BR)
  Receive Date: 20131129
  Receipt Date: 20150911
  Transmission Date: 20151125
  Serious: Yes (Life-Threatening, Hospitalization, Other)
  Sender: FDA-Public Use
  Company Number: PHHY2013BR137952

PATIENT
  Age: 75 Year
  Sex: Female
  Weight: 50 kg

DRUGS (14)
  1. CALCIUM + VITAMIN D3 [Concomitant]
     Indication: OSTEOPOROSIS
     Dosage: 1 DF, QD
     Route: 048
  2. SANDOSTATIN LAR DEPOT [Suspect]
     Active Substance: OCTREOTIDE ACETATE
     Indication: PANCREATIC NEUROENDOCRINE TUMOUR
     Dosage: 1 DF, EVERY 28 DAYS
     Route: 030
  3. DENYL//CITALOPRAM HYDROBROMIDE [Concomitant]
     Indication: ANTIDEPRESSANT THERAPY
     Dosage: 1 DF, QD AT BREAKFAST
     Route: 048
  4. SIMVASTATIN. [Concomitant]
     Active Substance: SIMVASTATIN
     Indication: BLOOD CHOLESTEROL ABNORMAL
     Dosage: 1 DF, QD
     Route: 065
  5. FENOBARBITAL [Concomitant]
     Active Substance: PHENOBARBITAL
     Indication: APPETITE DISORDER
     Dosage: 1 DF, QD
     Route: 065
  6. GLUCERNA//NUTRIENTS NOS [Concomitant]
     Indication: APPETITE DISORDER
  7. SANDOSTATIN LAR DEPOT [Suspect]
     Active Substance: OCTREOTIDE ACETATE
     Indication: HEPATIC NEOPLASM
     Dosage: 1 DF (AMPOULE), QMO (EVERY 28 DAYS)
     Route: 030
  8. ALOIS [Concomitant]
     Active Substance: MEMANTINE
     Indication: DEMENTIA
     Dosage: 1 DF, QD
     Route: 048
  9. PROPANOLOL [Concomitant]
     Active Substance: PROPRANOLOL HYDROCHLORIDE
     Indication: HYPERTENSION
     Dosage: 1 DF, QD
     Route: 048
  10. OSCAL [Concomitant]
     Active Substance: CALCIUM CARBONATE
     Indication: BONE DISORDER
     Dosage: UNK, BID AT BREAKFAST AND AT NIGHT
     Route: 065
  11. ALENDRONATE SODIUM. [Concomitant]
     Active Substance: ALENDRONATE SODIUM
     Indication: BONE DISORDER
     Dosage: UNK UKN, QW EVERY FRIDAY
     Route: 065
  12. ALOIS [Concomitant]
     Active Substance: MEMANTINE
     Indication: MEMORY IMPAIRMENT
  13. GLUCERNA//NUTRIENTS NOS [Concomitant]
     Indication: SUPPLEMENTATION THERAPY
     Dosage: 1 DF, QD
     Route: 048
  14. PROTOS (STRONTIUM RANELATE) [Concomitant]
     Indication: PRODUCT USED FOR UNKNOWN INDICATION
     Route: 065

REACTIONS (25)
  - Coma [Recovered/Resolved]
  - Head injury [Unknown]
  - Malignant neoplasm progression [Recovering/Resolving]
  - Eating disorder [Recovering/Resolving]
  - Varicose vein [Unknown]
  - Pain in extremity [Unknown]
  - Aneurysm [Unknown]
  - Cerebrovascular accident [Recovering/Resolving]
  - Lower limb fracture [Recovered/Resolved]
  - Daydreaming [Unknown]
  - Irritability [Unknown]
  - Off label use [Unknown]
  - Weight decreased [Recovering/Resolving]
  - Fall [Recovering/Resolving]
  - Diabetes mellitus [Recovering/Resolving]
  - Hearing impaired [Unknown]
  - Sleep disorder [Unknown]
  - Post procedural complication [Unknown]
  - Blood cholesterol increased [Recovering/Resolving]
  - Hypertension [Recovering/Resolving]
  - Amnesia [Recovering/Resolving]
  - Mental disorder [Unknown]
  - Weight increased [Not Recovered/Not Resolved]
  - Visual impairment [Unknown]
  - Decreased appetite [Recovering/Resolving]

NARRATIVE: CASE EVENT DATE: 20081121
